FAERS Safety Report 5298880-3 (Version None)
Quarter: 2007Q2

REPORT INFORMATION
  Report Type: 
  Country: None (occurrence: None)
  Receive Date: 20070412
  Receipt Date: 20070412
  Transmission Date: 20071010
  Serious: Yes (Other)
  Sender: FDA-Public Use
  Company Number: None

PATIENT
  Age: 68 Year
  Sex: Female
  Weight: 56.6996 kg

DRUGS (4)
  1. CLINDAMYCIN [Suspect]
     Indication: TOOTH ABSCESS
     Dosage: 1 CAPSULE Q 6 HRS PO
     Route: 048
     Dates: start: 20070326, end: 20070405
  2. BENEDRYL [Concomitant]
  3. KENALOG [Concomitant]
  4. PREDNISONE TAB [Concomitant]

REACTIONS (7)
  - EYE SWELLING [None]
  - FEELING ABNORMAL [None]
  - OEDEMA MOUTH [None]
  - RASH ERYTHEMATOUS [None]
  - RASH PAPULAR [None]
  - RASH PRURITIC [None]
  - SWELLING FACE [None]
